FAERS Safety Report 4314027-1 (Version None)
Quarter: 2004Q1

REPORT INFORMATION
  Report Type: 
  Country: None (occurrence: None)
  Receive Date: 20040305
  Receipt Date: 20040225
  Transmission Date: 20041129
  Serious: Yes (Life-Threatening, Other)
  Sender: FDA-Public Use
  Company Number: NSADSS2003010198

PATIENT
  Age: 65 Year
  Sex: Female
  Weight: 94 kg

DRUGS (4)
  1. REOPRO [Suspect]
     Indication: ANGIOPLASTY
     Dosage: 10 MG, 1 IN 1 AS NECESSARY, INTRAVENOUS DRIP
     Route: 041
     Dates: start: 20030218, end: 20030218
  2. ENOXAPARIN SODIUM [Suspect]
     Indication: CORONARY ANGIOPLASTY
     Dates: start: 20030218
  3. TICLID [Concomitant]
  4. HEPARIN [Concomitant]

REACTIONS (2)
  - CARDIAC TAMPONADE [None]
  - INFUSION RELATED REACTION [None]
